FAERS Safety Report 9162748 (Version 2)
Quarter: 2013Q1

REPORT INFORMATION
  Report Type: Spontaneous
  Country: US (occurrence: US)
  Receive Date: 20130314
  Receipt Date: 20130328
  Transmission Date: 20140127
  Serious: Yes (Hospitalization, Other)
  Sender: FDA-Public Use
  Company Number: PHEH2013US004736

PATIENT
  Age: 52 Year
  Sex: Female
  Weight: 45.35 kg

DRUGS (6)
  1. GILENYA [Suspect]
     Indication: MULTIPLE SCLEROSIS
     Dosage: 1 DF, QD
     Route: 048
     Dates: start: 20121218, end: 20130312
  2. BACLOFEN [Concomitant]
  3. ZANAFLEX [Concomitant]
  4. FLOMAX [Concomitant]
  5. ACTONEL [Concomitant]
  6. FLUOXETINE [Concomitant]

REACTIONS (8)
  - Multiple sclerosis relapse [Unknown]
  - Paralysis [Unknown]
  - Musculoskeletal stiffness [Not Recovered/Not Resolved]
  - Hypoaesthesia [Not Recovered/Not Resolved]
  - Sensory loss [Unknown]
  - Dizziness [Not Recovered/Not Resolved]
  - Chest discomfort [Unknown]
  - Inappropriate schedule of drug administration [Unknown]
